FAERS Safety Report 24794293 (Version 1)
Quarter: 2024Q4

REPORT INFORMATION
  Report Type: Spontaneous
  Country: FR (occurrence: FR)
  Receive Date: 20241231
  Receipt Date: 20241231
  Transmission Date: 20250115
  Serious: Yes (Other)
  Sender: TEVA
  Company Number: None

PATIENT
  Age: 70 Year
  Sex: Female

DRUGS (3)
  1. AMOXICILLIN [Suspect]
     Active Substance: AMOXICILLIN
     Indication: Rhinitis
     Dosage: TIME INTERVAL: TOTAL
     Route: 048
     Dates: start: 20240624, end: 20240624
  2. ACETAMINOPHEN [Concomitant]
     Active Substance: ACETAMINOPHEN
     Indication: Rhinitis
     Dosage: TIME INTERVAL: TOTAL
     Route: 048
     Dates: start: 20240624, end: 20240624
  3. Neomycin sulfate  Polymyxin b sulfate Tixocortol pivalate [Concomitant]
     Indication: Product used for unknown indication
     Dosage: TIME INTERVAL: TOTAL: PIVALONE
     Route: 045
     Dates: start: 20240624, end: 20240624

REACTIONS (1)
  - Anaphylactic reaction [Recovered/Resolved]

NARRATIVE: CASE EVENT DATE: 20240624
